FAERS Safety Report 23649692 (Version 1)
Quarter: 2024Q1

REPORT INFORMATION
  Report Type: Spontaneous
  Country: KR (occurrence: None)
  Receive Date: 20240319
  Receipt Date: 20240319
  Transmission Date: 20240409
  Serious: Yes (Death)
  Sender: FDA-Public Use
  Company Number: 2024A064806

PATIENT
  Age: 29744 Day
  Sex: Male

DRUGS (3)
  1. TAGRISSO [Suspect]
     Active Substance: OSIMERTINIB
     Route: 048
     Dates: start: 20230209
  2. TAGRISSO [Suspect]
     Active Substance: OSIMERTINIB
     Dosage: 10 TABLETS
     Route: 048
     Dates: start: 20230217
  3. TAGRISSO [Suspect]
     Active Substance: OSIMERTINIB
     Dosage: 28 TABLETS
     Route: 048
     Dates: start: 20230316

REACTIONS (5)
  - Cardio-respiratory arrest [Fatal]
  - Pneumonia [Fatal]
  - Respiratory failure [Fatal]
  - Lung neoplasm malignant [Fatal]
  - Brain cancer metastatic [Fatal]

NARRATIVE: CASE EVENT DATE: 20230609
